FAERS Safety Report 16964669 (Version 2)
Quarter: 2019Q4

REPORT INFORMATION
  Report Type: Spontaneous
  Country: JP (occurrence: JP)
  Receive Date: 20191028
  Receipt Date: 20191126
  Transmission Date: 20200122
  Serious: Yes (Hospitalization, Other)
  Sender: FDA-Public Use
  Company Number: JP-009507513-1910JPN003278J

PATIENT
  Age: 83 Year
  Sex: Male
  Weight: 54 kg

DRUGS (11)
  1. REPAGLINIDE. [Concomitant]
     Active Substance: REPAGLINIDE
     Indication: TYPE 2 DIABETES MELLITUS
     Dosage: 1 DOSAGE FORM, TID
     Route: 048
  2. ALTAT [Concomitant]
     Active Substance: ROXATIDINE ACETATE HYDROCHLORIDE
     Indication: GASTRITIS
     Dosage: 75 MILLIGRAM, QD
     Route: 048
  3. TRESIBA [Suspect]
     Active Substance: INSULIN DEGLUDEC
     Indication: TYPE 2 DIABETES MELLITUS
     Dosage: 11 INTERNATIONAL UNIT, QD
     Route: 058
  4. GLUFAST [Suspect]
     Active Substance: MITIGLINIDE
     Indication: TYPE 2 DIABETES MELLITUS
     Dosage: 10 MILLIGRAM, TID
     Route: 048
  5. SELBEX [Concomitant]
     Active Substance: TEPRENONE
     Indication: GASTRITIS
     Dosage: 50 MILLIGRAM, TID
     Route: 048
  6. AIMIX [Concomitant]
     Active Substance: AMLODIPINE BESYLATE\IRBESARTAN
     Indication: HYPERTENSION
     Dosage: HD, QD
     Route: 048
  7. CLOPIDOGREL [Concomitant]
     Active Substance: CLOPIDOGREL BISULFATE
     Indication: ANGINA PECTORIS
     Dosage: 75 MILLIGRAM, QD
     Route: 048
  8. LUPRAC [Concomitant]
     Active Substance: TORSEMIDE
     Indication: CARDIAC FAILURE
     Dosage: 8 MILLIGRAM, QD
     Route: 048
  9. NIFEDIPINE. [Concomitant]
     Active Substance: NIFEDIPINE
     Indication: HYPERTENSION
     Dosage: 40 MILLIGRAM, QD
     Route: 048
  10. PITAVASTATIN CALCIUM [Concomitant]
     Active Substance: PITAVASTATIN CALCIUM
     Indication: HYPERLIPIDAEMIA
     Dosage: 2 MILLIGRAM, QD
     Route: 048
  11. JANUVIA [Suspect]
     Active Substance: SITAGLIPTIN PHOSPHATE
     Indication: TYPE 2 DIABETES MELLITUS
     Dosage: 100 MILLIGRAM, QD
     Route: 048

REACTIONS (1)
  - Hypoglycaemic coma [Recovered/Resolved]

NARRATIVE: CASE EVENT DATE: 20160130
